FAERS Safety Report 7593391-4 (Version None)
Quarter: 2011Q3

REPORT INFORMATION
  Report Type: 
  Country: None (occurrence: None)
  Receive Date: 20110706
  Receipt Date: 20110627
  Transmission Date: 20111222
  Serious: Yes (Hospitalization, Other)
  Sender: FDA-Public Use
  Company Number: US-MERCK-1012USA01886

PATIENT
  Age: 68 Year
  Sex: Female
  Weight: 77 kg

DRUGS (9)
  1. FOSAMAX [Suspect]
     Route: 048
     Dates: start: 20020509, end: 20081024
  2. VITAMINS (UNSPECIFIED) [Concomitant]
     Route: 065
     Dates: start: 20010101
  3. FOSAMAX [Suspect]
     Indication: OSTEOPOROSIS
     Route: 048
     Dates: start: 20010531, end: 20020301
  4. VITAMIN D (UNSPECIFIED) [Concomitant]
     Route: 065
  5. ASCORBIC ACID [Concomitant]
     Route: 065
     Dates: start: 20010101
  6. CALCIUM (UNSPECIFIED) [Concomitant]
     Route: 065
     Dates: start: 20010101
  7. CHONDROITIN SULFATE SODIUM AND GLUCOSAMINE SULFATE [Concomitant]
     Route: 065
     Dates: start: 20010101
  8. CALCIUM CARBONATE [Concomitant]
     Route: 065
     Dates: start: 20010101
  9. ATENOLOL [Concomitant]
     Indication: HYPERTENSION
     Route: 065
     Dates: start: 19980101, end: 20080101

REACTIONS (39)
  - FALL [None]
  - DEAFNESS [None]
  - DIARRHOEA [None]
  - BUNDLE BRANCH BLOCK RIGHT [None]
  - DIVERTICULUM [None]
  - CYST [None]
  - GASTROENTERITIS VIRAL [None]
  - BONE MARROW OEDEMA [None]
  - SPINAL OSTEOARTHRITIS [None]
  - IRON DEFICIENCY ANAEMIA [None]
  - PAIN IN EXTREMITY [None]
  - TRIGEMINAL NERVE PARESIS [None]
  - ANAEMIA [None]
  - SKIN CANCER [None]
  - DIPLOPIA [None]
  - MYALGIA [None]
  - DERMATITIS CONTACT [None]
  - FEMUR FRACTURE [None]
  - VERTIGO [None]
  - EAR INFECTION VIRAL [None]
  - GOITRE [None]
  - SUPRAVENTRICULAR EXTRASYSTOLES [None]
  - BONE DISORDER [None]
  - SEASONAL ALLERGY [None]
  - RHINITIS ALLERGIC [None]
  - COLITIS MICROSCOPIC [None]
  - COLONIC POLYP [None]
  - NAUSEA [None]
  - HAEMORRHOIDS [None]
  - FATIGUE [None]
  - CELLULITIS [None]
  - HIP FRACTURE [None]
  - VAGINAL INFECTION [None]
  - NECK PAIN [None]
  - HAEMORRHAGIC ANAEMIA [None]
  - LACUNAR INFARCTION [None]
  - ARTHROPATHY [None]
  - PALLOR [None]
  - BLOOD CHOLESTEROL INCREASED [None]
